FAERS Safety Report 20203360 (Version 2)
Quarter: 2022Q1

REPORT INFORMATION
  Report Type: Report from Study
  Country: US (occurrence: US)
  Receive Date: 20211218
  Receipt Date: 20220211
  Transmission Date: 20220423
  Serious: Yes (Hospitalization)
  Sender: FDA-Public Use
  Company Number: US-REGENERON PHARMACEUTICALS, INC.-2021-114988

PATIENT

DRUGS (5)
  1. CEMIPLIMAB [Suspect]
     Active Substance: CEMIPLIMAB
     Indication: Pancreatic carcinoma metastatic
     Dosage: 350 MG, Q3W
     Route: 042
     Dates: start: 20211101, end: 20211122
  2. MOTIXAFORTIDE [Suspect]
     Active Substance: MOTIXAFORTIDE
     Indication: Pancreatic carcinoma metastatic
     Dosage: 1.25 MG/KG
     Route: 058
     Dates: start: 20211025, end: 20211207
  3. GEMCITABINE [Suspect]
     Active Substance: GEMCITABINE
     Indication: Pancreatic carcinoma metastatic
     Dosage: 1000 MG/M2
     Route: 042
     Dates: start: 20211101, end: 20211207
  4. PACLITAXEL [Suspect]
     Active Substance: PACLITAXEL
     Indication: Pancreatic carcinoma metastatic
     Dosage: 125 MG/M2, UNK
     Route: 042
     Dates: start: 20211101, end: 20211207
  5. SUBLIMAZE                          /00174601/ [Concomitant]
     Indication: Abdominal pain

REACTIONS (6)
  - Dizziness [Recovered/Resolved]
  - Anaemia [Not Recovered/Not Resolved]
  - Pyrexia [Recovered/Resolved]
  - Vascular pseudoaneurysm [Not Recovered/Not Resolved]
  - Lower gastrointestinal haemorrhage [Not Recovered/Not Resolved]
  - Sepsis [Not Recovered/Not Resolved]

NARRATIVE: CASE EVENT DATE: 20211208
